FAERS Safety Report 4575032-3 (Version None)
Quarter: 2005Q1

REPORT INFORMATION
  Report Type: 
  Country: None (occurrence: None)
  Receive Date: 20050208
  Receipt Date: 20041210
  Transmission Date: 20050727
  Serious: Yes (Death, Congenital Anomaly)
  Sender: FDA-Public Use
  Company Number: JP-SANOFI-SYNTHELABO-A01200406327

PATIENT
  Sex: Female
  Weight: 0.898 kg

DRUGS (19)
  1. NITRIC OXIDE [Concomitant]
     Dosage: 10 PPM
     Route: 065
     Dates: start: 20021004, end: 20021008
  2. SURFACTANT [Concomitant]
     Indication: RESPIRATORY DISTRESS
     Dosage: UNK
     Route: 065
  3. MILRILA [Suspect]
     Indication: PULMONARY VASCULAR DISORDER
     Dosage: 0.5 MCG/KG/MIN
     Route: 041
     Dates: start: 20021004, end: 20021004
  4. MILRILA [Suspect]
     Dosage: 0.6 MCG/KG/MIN
     Route: 041
     Dates: start: 20021004, end: 20021004
  5. MILRILA [Suspect]
     Dosage: 0.3 MCG/KG/MIN
     Route: 041
     Dates: start: 20021005, end: 20021005
  6. MILRILA [Suspect]
     Dosage: 0.6 MCG/KG/MIN
     Route: 041
     Dates: start: 20021005, end: 20021005
  7. MILRILA [Suspect]
     Dosage: 0.3 MCG/KG/MIN
     Route: 041
     Dates: start: 20021005, end: 20021008
  8. FUTHAN [Concomitant]
     Indication: DISSEMINATED INTRAVASCULAR COAGULATION IN NEWBORN
     Dosage: 2.4 MG/KG
     Route: 042
     Dates: start: 20021004, end: 20021006
  9. MORPHINE HYDROCHLORIDE [Concomitant]
     Indication: SMALL FOR DATES BABY
     Dosage: 0.6-1.2 MG/KG/DAY
     Route: 042
     Dates: start: 20021004, end: 20021011
  10. MIRACLID [Concomitant]
     Indication: DISSEMINATED INTRAVASCULAR COAGULATION IN NEWBORN
     Dosage: 6 (KU)/DAY
     Route: 042
     Dates: start: 20021004, end: 20021010
  11. MIRACLID [Concomitant]
     Indication: SHOCK
     Dosage: 6 (KU)/DAY
     Route: 042
     Dates: start: 20021004, end: 20021010
  12. ANTHROBIN P [Concomitant]
     Indication: DISSEMINATED INTRAVASCULAR COAGULATION IN NEWBORN
     Dosage: UNK
     Route: 042
     Dates: start: 20021004, end: 20021006
  13. GENTACIN [Concomitant]
     Indication: NEONATAL INFECTION
     Dosage: 3 MG
     Route: 042
     Dates: start: 20021004, end: 20021011
  14. VICCILIN [Concomitant]
     Indication: NEONATAL INFECTION
     Dosage: 60 MG
     Route: 042
     Dates: start: 20021004, end: 20021012
  15. DOBUTREX [Concomitant]
     Indication: SHOCK
     Dosage: 7-11 MCG/KG/MIN
     Route: 042
     Dates: start: 20021004, end: 20021007
  16. INOVAN [Concomitant]
     Indication: SHOCK
     Dosage: 7-11 MCG/KG/MIN
     Route: 042
     Dates: start: 20021004, end: 20021007
  17. MIDAZOLAM HCL [Concomitant]
     Dosage: 0.72 MG/KG
     Route: 042
     Dates: start: 20021011, end: 20021012
  18. DECADRON [Concomitant]
     Dosage: 0.4 MG
     Route: 042
     Dates: start: 20021005, end: 20021005
  19. INSULIN [Concomitant]
     Dosage: 0.84 UT/DAY
     Route: 042
     Dates: start: 20021005, end: 20021007

REACTIONS (3)
  - BLOOD PRESSURE DECREASED [None]
  - INTRAVENTRICULAR HAEMORRHAGE NEONATAL [None]
  - PATENT DUCTUS ARTERIOSUS [None]
